FAERS Safety Report 5781552-6 (Version None)
Quarter: 2008Q2

REPORT INFORMATION
  Report Type: 
  Country: None (occurrence: None)
  Receive Date: 20080623
  Receipt Date: 20070420
  Transmission Date: 20081010
  Serious: No
  Sender: FDA-Public Use
  Company Number: US-ASTRAZENECA-2007UW07822

PATIENT
  Age: 29 Year
  Sex: Female
  Weight: 72.6 kg

DRUGS (3)
  1. RHINOCORT [Suspect]
     Indication: HYPERSENSITIVITY
     Route: 045
     Dates: start: 20020101, end: 20070415
  2. RHINOCORT [Suspect]
     Route: 045
     Dates: start: 20070420
  3. ESTROSTEP [Concomitant]

REACTIONS (1)
  - EYE INFLAMMATION [None]
